FAERS Safety Report 9276838 (Version 2)
Quarter: 2014Q1

REPORT INFORMATION
  Report Type: Report from Study
  Country: US (occurrence: US)
  Receive Date: 20130507
  Receipt Date: 20140320
  Transmission Date: 20141002
  Serious: Yes (Hospitalization)
  Sender: FDA-Public Use
  Company Number: US-ALEXION-A201201911

PATIENT
  Sex: 0

DRUGS (7)
  1. SOLIRIS [Suspect]
     Indication: PAROXYSMAL NOCTURNAL HAEMOGLOBINURIA
     Dosage: 600 MG, QW
     Route: 042
     Dates: start: 20111205
  2. SOLIRIS [Suspect]
     Dosage: 900 MG, Q2W
     Route: 042
     Dates: start: 20111227
  3. SOLIRIS [Suspect]
     Dosage: 900 MG, Q2W
     Route: 042
     Dates: start: 20120717
  4. OXYCODONE [Concomitant]
     Indication: PAIN
     Dosage: 5 MG, PRN Q4-6H
     Route: 048
     Dates: start: 20121127
  5. ONDANSETRON [Concomitant]
     Indication: NAUSEA
     Dosage: 1 DF, PRN QD
     Route: 048
     Dates: start: 20121127
  6. ONDANSETRON HYDROCHLORIDE [Concomitant]
     Indication: NAUSEA
     Dosage: 8 MG, PRN EVERY 8 HOURS
     Route: 048
  7. PROVENTIL HFA [Concomitant]
     Dosage: 2 DF, EVERY 4 HOURS

REACTIONS (5)
  - Fall [Recovered/Resolved]
  - Rib fracture [Not Recovered/Not Resolved]
  - Haemoglobin decreased [Unknown]
  - Haematocrit decreased [Unknown]
  - White blood cell count decreased [Unknown]
